FAERS Safety Report 10397845 (Version 2)
Quarter: 2014Q3

REPORT INFORMATION
  Report Type: Spontaneous
  Country: US (occurrence: US)
  Receive Date: 20140821
  Receipt Date: 20140826
  Transmission Date: 20150326
  Serious: No
  Sender: FDA-Public Use
  Company Number: US-BIOGENIDEC-2014BI081371

PATIENT
  Age: 52 Year
  Sex: Male

DRUGS (1)
  1. TECFIDERA [Suspect]
     Active Substance: DIMETHYL FUMARATE
     Indication: RELAPSING-REMITTING MULTIPLE SCLEROSIS
     Dates: start: 20140723

REACTIONS (4)
  - Feeling drunk [Recovered/Resolved with Sequelae]
  - Panic attack [Recovered/Resolved]
  - Frustration [Unknown]
  - Loss of consciousness [Recovered/Resolved with Sequelae]

NARRATIVE: CASE EVENT DATE: 20140804
